FAERS Safety Report 5365288-1 (Version None)
Quarter: 2007Q2

REPORT INFORMATION
  Report Type: 
  Country: None (occurrence: None)
  Receive Date: 20070621
  Receipt Date: 20070608
  Transmission Date: 20071010
  Serious: Yes (Other)
  Sender: FDA-Public Use
  Company Number: FR-BAYER-200710368BFR

PATIENT
  Age: 45 Year
  Sex: Female

DRUGS (7)
  1. CIFLOX [Suspect]
     Indication: RECTAL ABSCESS
     Dosage: UNIT DOSE: 500 MG
     Route: 048
     Dates: start: 20070601, end: 20070610
  2. FLAGYL [Concomitant]
     Indication: RECTAL ABSCESS
     Dosage: UNIT DOSE: 500 MG
     Route: 048
     Dates: start: 20070601, end: 20070610
  3. CORTANCYL [Concomitant]
     Indication: UNEVALUABLE EVENT
  4. PLAQUENIL [Concomitant]
     Indication: UNEVALUABLE EVENT
  5. AZATHIOPRINE SODIUM [Concomitant]
     Indication: UNEVALUABLE EVENT
  6. ACETAMINOPHEN [Concomitant]
     Indication: UNEVALUABLE EVENT
  7. CITALOPRAM HYDROBROMIDE [Concomitant]
     Indication: UNEVALUABLE EVENT

REACTIONS (1)
  - MUSCLE RUPTURE [None]
